FAERS Safety Report 8401708 (Version 5)
Quarter: 2013Q4

REPORT INFORMATION
  Report Type: Spontaneous
  Country: US (occurrence: US)
  Receive Date: 20120213
  Receipt Date: 20131101
  Transmission Date: 20140711
  Serious: Yes (Hospitalization)
  Sender: FDA-Public Use
  Company Number: US-BIOGENIDEC-202864

PATIENT
  Age: 63 Year
  Sex: Female
  Weight: 46 kg

DRUGS (7)
  1. AVONEX [Suspect]
     Indication: MULTIPLE SCLEROSIS
     Route: 030
     Dates: start: 2004
  2. AVONEX [Suspect]
     Indication: MULTIPLE SCLEROSIS
     Route: 030
     Dates: start: 2004
  3. AVONEX [Suspect]
     Indication: MULTIPLE SCLEROSIS
     Route: 030
     Dates: start: 19990910, end: 2004
  4. CLONAZEPAM [Concomitant]
     Indication: RESTLESS LEGS SYNDROME
  5. PAXIL [Concomitant]
     Indication: ANXIETY
     Dates: start: 200404
  6. PREMPRO [Concomitant]
     Indication: HORMONE REPLACEMENT THERAPY
     Dates: start: 200407
  7. GRAPE SEED EXTRACT [Concomitant]
     Indication: MEDICAL DIET

REACTIONS (38)
  - Breast cancer in situ [Recovered/Resolved]
  - Fibrocystic breast disease [Not Recovered/Not Resolved]
  - Breast cyst [Recovered/Resolved]
  - Fall [Recovered/Resolved]
  - Osteopenia [Not Recovered/Not Resolved]
  - Hyperaesthesia [Recovered/Resolved]
  - Incontinence [Not Recovered/Not Resolved]
  - Progressive multiple sclerosis [Not Recovered/Not Resolved]
  - Memory impairment [Not Recovered/Not Resolved]
  - Osteoporosis [Not Recovered/Not Resolved]
  - Cystitis [Recovered/Resolved]
  - Fungal infection [Recovered/Resolved]
  - Gait disturbance [Not Recovered/Not Resolved]
  - Abasia [Not Recovered/Not Resolved]
  - Dysstasia [Not Recovered/Not Resolved]
  - Hemiparesis [Unknown]
  - Injury associated with device [Unknown]
  - Visual impairment [Unknown]
  - Coordination abnormal [Not Recovered/Not Resolved]
  - Sensory disturbance [Not Recovered/Not Resolved]
  - Panic reaction [Unknown]
  - Mental disorder [Unknown]
  - Thyroid disorder [Unknown]
  - Mobility decreased [Unknown]
  - Limb injury [Recovered/Resolved]
  - Breast pain [Recovered/Resolved]
  - Local swelling [Not Recovered/Not Resolved]
  - Rotator cuff syndrome [Not Recovered/Not Resolved]
  - Bone pain [Not Recovered/Not Resolved]
  - Hypothyroidism [Not Recovered/Not Resolved]
  - Influenza like illness [Recovered/Resolved]
  - Arthralgia [Unknown]
  - Hot flush [Not Recovered/Not Resolved]
  - Fatigue [Not Recovered/Not Resolved]
  - Pain in extremity [Recovered/Resolved]
  - Neck pain [Recovered/Resolved]
  - Drug ineffective [Unknown]
  - Confusional state [Not Recovered/Not Resolved]
